FAERS Safety Report 8068315-6 (Version None)
Quarter: 2012Q1

REPORT INFORMATION
  Report Type: 
  Country: None (occurrence: None)
  Receive Date: 20120124
  Receipt Date: 20111014
  Transmission Date: 20120608
  Serious: No
  Sender: FDA-Public Use
  Company Number: US-AMGEN-USASP2011053265

PATIENT
  Age: 82 Year
  Sex: Female

DRUGS (5)
  1. XGEVA [Suspect]
     Indication: METASTASES TO BONE
     Dates: start: 20110930
  2. SIMVASTATIN [Concomitant]
     Dosage: UNK
  3. CASODEX [Concomitant]
     Dosage: 1 MG, QD
  4. METFORMIN HCL [Concomitant]
     Dosage: 2 MG, QD
  5. ASPIRIN [Concomitant]
     Dosage: UNK

REACTIONS (1)
  - TOOTH FRACTURE [None]
